FAERS Safety Report 7654519-0 (Version None)
Quarter: 2011Q3

REPORT INFORMATION
  Report Type: 
  Country: None (occurrence: None)
  Receive Date: 20110803
  Receipt Date: 20110802
  Transmission Date: 20111222
  Serious: Yes (Other)
  Sender: FDA-Public Use
  Company Number: JP-ABBOTT-11P-087-0841746-00

PATIENT
  Sex: Male

DRUGS (4)
  1. HUMIRA [Suspect]
     Indication: CROHN'S DISEASE
     Route: 058
     Dates: start: 20110519, end: 20110519
  2. HUMIRA [Suspect]
  3. AZATHIOPRINE SODIUM [Concomitant]
     Indication: CROHN'S DISEASE
     Dates: end: 20110701
  4. HUMIRA [Suspect]

REACTIONS (3)
  - C-REACTIVE PROTEIN INCREASED [None]
  - PYREXIA [None]
  - MALAISE [None]
